FAERS Safety Report 6577356-7 (Version None)
Quarter: 2010Q1

REPORT INFORMATION
  Report Type: 
  Country: None (occurrence: None)
  Receive Date: 20100211
  Receipt Date: 20100208
  Transmission Date: 20100710
  Serious: Yes (Hospitalization)
  Sender: FDA-Public Use
  Company Number: US-BIOGENIDEC-2009BI041290

PATIENT
  Age: 63 Year
  Sex: Female

DRUGS (10)
  1. TYSABRI [Suspect]
     Indication: MULTIPLE SCLEROSIS
     Route: 042
     Dates: start: 20061229, end: 20091101
  2. AVONEX [Concomitant]
     Indication: MULTIPLE SCLEROSIS
     Route: 030
     Dates: start: 19990101
  3. PROVIGIL [Concomitant]
     Indication: FATIGUE
  4. CYMBALTA [Concomitant]
     Indication: DEPRESSION
  5. CYMBALTA [Concomitant]
     Indication: PAIN
  6. LYRICA [Concomitant]
     Indication: PAIN
  7. THEOPHYLLINE [Concomitant]
     Indication: TREMOR
  8. DETROL [Concomitant]
     Indication: BLADDER DISORDER
  9. BP MEDICATION (NOS) [Concomitant]
     Indication: BLOOD PRESSURE ABNORMAL
  10. PAIN MEDICATION (NOS) [Concomitant]
     Indication: PAIN

REACTIONS (1)
  - INTENTION TREMOR [None]
